FAERS Safety Report 10433757 (Version 1)
Quarter: 2014Q3

REPORT INFORMATION
  Report Type: Spontaneous
  Country: NL (occurrence: NL)
  Receive Date: 20140905
  Receipt Date: 20140905
  Transmission Date: 20150326
  Serious: Yes (Hospitalization, Other)
  Sender: FDA-Public Use
  Company Number: NL-PFIZER INC-2014243159

PATIENT
  Age: 91 Year
  Sex: Female
  Weight: 68 kg

DRUGS (10)
  1. TRAVATAN [Concomitant]
     Active Substance: TRAVOPROST
  2. PROMOCARD [Concomitant]
     Active Substance: ISOSORBIDE MONONITRATE
     Dosage: 30 MG, 1X/DAY
  3. BUMETANIDE. [Concomitant]
     Active Substance: BUMETANIDE
     Dosage: 1 MG, 1X/DAY
     Dates: start: 2008
  4. SELOKEEN [Concomitant]
     Active Substance: METOPROLOL
     Dosage: 50 MG, 2X/DAY
  5. SIMVASTATIN. [Concomitant]
     Active Substance: SIMVASTATIN
     Dosage: 5 MG, 1X/DAY
  6. DICLOFENAC [Interacting]
     Active Substance: DICLOFENAC
     Indication: RHEUMATIC DISORDER
     Dosage: 100 MG, 1X/DAY
     Dates: start: 1992
  7. PANTOPRAZOLE [Concomitant]
     Active Substance: PANTOPRAZOLE SODIUM
     Dosage: 40 MG, 1X/DAY
  8. AZITHROMYCIN [Suspect]
     Active Substance: AZITHROMYCIN ANHYDROUS
     Indication: BURSITIS
     Dosage: 500 MG, 4X/DAY
     Dates: start: 20140807, end: 20140811
  9. ACENOCOUMAROL [Concomitant]
     Active Substance: ACENOCOUMAROL
  10. CANDESARTAN [Concomitant]
     Active Substance: CANDESARTAN
     Dosage: 2 MG, 1X/DAY

REACTIONS (5)
  - Drug interaction [Recovering/Resolving]
  - Cardiac failure [Recovering/Resolving]
  - Overdose [Unknown]
  - Renal impairment [Recovering/Resolving]
  - Dyspnoea [Unknown]

NARRATIVE: CASE EVENT DATE: 20140812
